FAERS Safety Report 8822265 (Version 1)
Quarter: 2012Q4

REPORT INFORMATION
  Report Type: 
  Country: US (occurrence: US)
  Receive Date: 20121003
  Receipt Date: 20121003
  Transmission Date: 20130627
  Serious: Yes (Other)
  Sender: FDA-Public Use
  Company Number: US-009507513-1209USA006434

PATIENT
  Age: 55 None
  Sex: Female

DRUGS (5)
  1. PEGINTRON [Suspect]
     Indication: HEPATITIS C
     Dosage: UNK
     Dates: start: 19950701, end: 19960101
  2. PEGINTRON [Suspect]
     Dosage: UNK
  3. REBETOL [Suspect]
     Indication: HEPATITIS C
     Dosage: UNK
     Dates: start: 19950701, end: 19960101
  4. REBETOL [Suspect]
     Dosage: UNK
     Dates: start: 20120813
  5. TELAPREVIR [Concomitant]
     Indication: HEPATITIS C
     Dosage: UNK
     Dates: start: 20120813

REACTIONS (10)
  - Wrist fracture [Unknown]
  - Rotator cuff repair [Unknown]
  - Fall [Unknown]
  - Obesity [Unknown]
  - Intervertebral disc degeneration [Unknown]
  - Arthritis [Unknown]
  - Chondroplasty [Unknown]
  - Liver function test abnormal [Unknown]
  - Headache [Recovered/Resolved]
  - Fatigue [Unknown]
